FAERS Safety Report 15598135 (Version 2)
Quarter: 2019Q1

REPORT INFORMATION
  Report Type: Spontaneous
  Country: US (occurrence: US)
  Receive Date: 20181108
  Receipt Date: 20190130
  Transmission Date: 20190417
  Serious: Yes (Other)
  Sender: FDA-Public Use
  Company Number: US-SAOL THERAPEUTICS-2018SAO01071

PATIENT
  Age: 50 Year
  Sex: Female

DRUGS (2)
  1. LIORESAL [Suspect]
     Active Substance: BACLOFEN
     Dosage: 100 ?G, \DAY
     Route: 037
  2. LIORESAL [Suspect]
     Active Substance: BACLOFEN
     Dosage: 440 ?G, \DAY
     Route: 037

REACTIONS (2)
  - Cerebrospinal fluid leakage [Recovered/Resolved]
  - Device damage [Recovered/Resolved]

NARRATIVE: CASE EVENT DATE: 20181101
